FAERS Safety Report 13374179 (Version 1)
Quarter: 2017Q1

REPORT INFORMATION
  Report Type: Spontaneous
  Country: NL (occurrence: NL)
  Receive Date: 20170327
  Receipt Date: 20170327
  Transmission Date: 20170429
  Serious: Yes (Death, Hospitalization)
  Sender: FDA-Public Use
  Company Number: NL-TEVA-753127ROM

PATIENT
  Age: 71 Year
  Sex: Male

DRUGS (3)
  1. CAPECITABINE. [Suspect]
     Active Substance: CAPECITABINE
     Indication: ADENOCARCINOMA
     Route: 065
  2. EPIRUBICIN [Concomitant]
     Active Substance: EPIRUBICIN
  3. CISPLATIN. [Concomitant]
     Active Substance: CISPLATIN

REACTIONS (10)
  - Multiple organ dysfunction syndrome [Fatal]
  - Tachypnoea [Unknown]
  - Metabolic acidosis [Unknown]
  - Tachycardia [Unknown]
  - Pneumatosis intestinalis [Unknown]
  - Diarrhoea [Unknown]
  - Febrile neutropenia [Unknown]
  - Intestinal ischaemia [Unknown]
  - Mucosal inflammation [Unknown]
  - Hypotension [Unknown]
